FAERS Safety Report 4733337-7 (Version None)
Quarter: 2005Q3

REPORT INFORMATION
  Report Type: 
  Country: None (occurrence: None)
  Receive Date: 20050801
  Receipt Date: 20050801
  Transmission Date: 20060218
  Serious: Yes (Hospitalization)
  Sender: FDA-Public Use
  Company Number: None

PATIENT
  Age: 56 Year
  Sex: Male

DRUGS (6)
  1. IBUPROFEN [Suspect]
     Indication: PAIN
  2. SPIRONOLACTONE [Suspect]
     Indication: HYPERTENSION
     Dosage: 25 MG QD
     Dates: start: 20040202
  3. LISINOPRIL [Suspect]
     Indication: HYPERTENSION
     Dosage: 20 MG BID
     Dates: start: 20020622
  4. FUROSEMIDE [Concomitant]
  5. GLIPIZIDE [Concomitant]
  6. ISOSORBIDE [Concomitant]

REACTIONS (2)
  - HYPERKALAEMIA [None]
  - RENAL FAILURE ACUTE [None]
